FAERS Safety Report 19910177 (Version 1)
Quarter: 2021Q4

REPORT INFORMATION
  Report Type: Spontaneous
  Country: AU (occurrence: AU)
  Receive Date: 20211003
  Receipt Date: 20211003
  Transmission Date: 20220303
  Serious: Yes (Hospitalization)
  Sender: FDA-Public Use
  Company Number: AU-ABBVIE-21K-008-4099729-00

PATIENT
  Age: 65 Year
  Sex: Female

DRUGS (2)
  1. VALPROATE SODIUM [Suspect]
     Active Substance: VALPROATE SODIUM
     Indication: Epilepsy
     Route: 065
  2. COSENTYX [Suspect]
     Active Substance: SECUKINUMAB
     Indication: Psoriatic arthropathy
     Route: 058
     Dates: start: 2017

REACTIONS (4)
  - Arthritis [Not Recovered/Not Resolved]
  - Lip pain [Unknown]
  - Lip swelling [Unknown]
  - Nausea [Unknown]

NARRATIVE: CASE EVENT DATE: 20180201
